FAERS Safety Report 10228752 (Version 4)
Quarter: 2014Q4

REPORT INFORMATION
  Report Type: Spontaneous
  Country: HR (occurrence: HR)
  Receive Date: 20140610
  Receipt Date: 20141016
  Transmission Date: 20150528
  Serious: Yes (Hospitalization)
  Sender: FDA-Public Use
  Company Number: HR-ELI_LILLY_AND_COMPANY-HR201404004587

PATIENT
  Sex: Male

DRUGS (3)
  1. APAURIN [Concomitant]
     Active Substance: DIAZEPAM
     Dosage: 5 MG, TID
     Route: 065
  2. ZYPADHERA [Suspect]
     Active Substance: OLANZAPINE PAMOATE
     Indication: SCHIZOPHRENIA
     Dosage: 405 MG, MONTHLY (1/M)
     Route: 030
     Dates: start: 20130326
  3. CIPRALEX [Concomitant]
     Active Substance: ESCITALOPRAM OXALATE
     Dosage: 10 MG, UNKNOWN
     Route: 065

REACTIONS (5)
  - Poisoning [Recovered/Resolved]
  - Cognitive disorder [Recovered/Resolved]
  - Anhedonia [Recovered/Resolved]
  - Apathy [Recovered/Resolved]
  - Sedation [Recovered/Resolved]

NARRATIVE: CASE EVENT DATE: 20140409
